FAERS Safety Report 25282835 (Version 1)
Quarter: 2025Q2

REPORT INFORMATION
  Report Type: Spontaneous
  Country: US (occurrence: None)
  Receive Date: 20250507
  Receipt Date: 20250507
  Transmission Date: 20250716
  Serious: Yes (Other)
  Sender: FDA-CTU
  Company Number: None

PATIENT
  Age: 38 Year
  Sex: Female
  Weight: 54 kg

DRUGS (11)
  1. AJOVY [Suspect]
     Active Substance: FREMANEZUMAB-VFRM
     Indication: Migraine
     Route: 058
  2. NEBIVOLOL [Concomitant]
     Active Substance: NEBIVOLOL
  3. XYZAL [Concomitant]
     Active Substance: LEVOCETIRIZINE DIHYDROCHLORIDE
  4. MAXALT [Concomitant]
     Active Substance: RIZATRIPTAN BENZOATE
  5. UBRELVY [Concomitant]
     Active Substance: UBROGEPANT
  6. ZOLMITRIPTAN [Concomitant]
     Active Substance: ZOLMITRIPTAN
  7. CELEBREX [Concomitant]
     Active Substance: CELECOXIB
  8. FLEXERIL [Concomitant]
     Active Substance: CYCLOBENZAPRINE HYDROCHLORIDE
  9. TRETINOIN [Concomitant]
     Active Substance: TRETINOIN
  10. hair, skin and nails gummie vitamin [Concomitant]
  11. melatonin gummies 10mg [Concomitant]

REACTIONS (4)
  - Arthralgia [None]
  - Myalgia [None]
  - Spinal pain [None]
  - Spinal pain [None]

NARRATIVE: CASE EVENT DATE: 20250208
